FAERS Safety Report 9780688 (Version 1)
Quarter: 2013Q4

REPORT INFORMATION
  Report Type: Spontaneous
  Country: DE (occurrence: DE)
  Receive Date: 20131224
  Receipt Date: 20131224
  Transmission Date: 20140711
  Serious: Yes (Life-Threatening, Hospitalization, Congenital Anomaly)
  Sender: FDA-Public Use
  Company Number: GXKR2013DE003855

PATIENT
  Age: 1 Day
  Sex: Female
  Weight: 3.28 kg

DRUGS (5)
  1. CITALOPRAM [Suspect]
     Dosage: 30 [MG/D ]
     Route: 064
     Dates: start: 20091009, end: 20100426
  2. PARACETAMOL [Concomitant]
     Indication: HEADACHE
     Route: 064
  3. ACIDO FOLICO [Concomitant]
     Dosage: 0.4 MG, QD
     Route: 064
  4. AMITRIPTYLINE [Concomitant]
     Indication: DEPRESSION
     Dosage: 75 MG, QD
     Dates: start: 20100420, end: 20100718
  5. DIAZEPAM [Concomitant]
     Indication: DEPRESSION
     Dosage: 2 MG, QD
     Dates: start: 20100506

REACTIONS (3)
  - Ventricular septal defect [Not Recovered/Not Resolved]
  - Truncus arteriosus persistent [Recovered/Resolved with Sequelae]
  - Atrial septal defect [Unknown]
